FAERS Safety Report 17812556 (Version 3)
Quarter: 2020Q3

REPORT INFORMATION
  Report Type: Spontaneous
  Country: CO (occurrence: CO)
  Receive Date: 20200521
  Receipt Date: 20200902
  Transmission Date: 20201102
  Serious: Yes (Other)
  Sender: FDA-Public Use
  Company Number: CO-PFIZER INC-2020182334

PATIENT
  Age: 64 Year
  Sex: Female

DRUGS (1)
  1. REAMPLA [Suspect]
     Active Substance: PALBOCICLIB
     Dosage: 125 MG, CYCLIC, 28 DAYS ON AND 7 DAYS OFF
     Route: 048
     Dates: start: 20200430, end: 2020

REACTIONS (4)
  - Tumour rupture [Unknown]
  - Off label use [Unknown]
  - Decreased immune responsiveness [Unknown]
  - Product use issue [Unknown]

NARRATIVE: CASE EVENT DATE: 2020
